FAERS Safety Report 8258935-8 (Version None)
Quarter: 2012Q2

REPORT INFORMATION
  Report Type: 
  Country: None (occurrence: None)
  Receive Date: 20120404
  Receipt Date: 20120330
  Transmission Date: 20120825
  Serious: Yes (Hospitalization)
  Sender: FDA-Public Use
  Company Number: NL-ROCHE-1036983

PATIENT
  Sex: Female
  Weight: 80 kg

DRUGS (8)
  1. PLAVIX [Concomitant]
  2. LUMIGAN [Concomitant]
  3. RANIBIZUMAB [Suspect]
     Route: 050
     Dates: start: 20111117, end: 20111117
  4. MOVICOLON [Concomitant]
  5. METOPROLOL SUCCINATE [Concomitant]
  6. TIOTROPIUM [Concomitant]
  7. RANIBIZUMAB [Suspect]
     Indication: DIABETIC RETINAL OEDEMA
     Route: 050
     Dates: start: 20110127, end: 20110127
  8. PRAVASTATIN [Concomitant]

REACTIONS (1)
  - TRANSIENT ISCHAEMIC ATTACK [None]
